FAERS Safety Report 4966949-6 (Version None)
Quarter: 2006Q2

REPORT INFORMATION
  Report Type: 
  Country: None (occurrence: None)
  Receive Date: 20060403
  Receipt Date: 20060316
  Transmission Date: 20061013
  Serious: Yes (Hospitalization)
  Sender: FDA-Public Use
  Company Number: 8015551

PATIENT
  Sex: Female
  Weight: 41.81 kg

DRUGS (6)
  1. DELSYM [Suspect]
     Indication: COUGH
     Dosage: 40 ML /D PO
     Route: 048
     Dates: start: 20060225, end: 20060226
  2. HYDROCODONE [Suspect]
     Indication: NECK PAIN
     Dosage: 1 D/ PO A FEW YEARS
     Route: 048
     Dates: end: 20060306
  3. VALIUM [Suspect]
     Indication: NECK PAIN
     Dosage: 5 MG PO A FEW YEARS
     Route: 048
     Dates: end: 20060306
  4. BENADRYL [Suspect]
     Indication: INSOMNIA
     Dosage: D/ PO
     Route: 048
     Dates: start: 20060106, end: 20060306
  5. RITALIN [Suspect]
     Indication: INSOMNIA
  6. FOCALIN [Suspect]

REACTIONS (8)
  - CONFUSIONAL STATE [None]
  - DRUG INEFFECTIVE [None]
  - ELECTROENCEPHALOGRAM ABNORMAL [None]
  - FEELING ABNORMAL [None]
  - HALLUCINATION, VISUAL [None]
  - IRRITABILITY [None]
  - OVERDOSE [None]
  - SELF-MEDICATION [None]
